FAERS Safety Report 6203762-6 (Version None)
Quarter: 2009Q2

REPORT INFORMATION
  Report Type: 
  Country: None (occurrence: None)
  Receive Date: 20090526
  Receipt Date: 20090526
  Transmission Date: 20091009
  Serious: Yes (Other)
  Sender: FDA-Public Use
  Company Number: None

PATIENT
  Age: 42 Year
  Sex: Female
  Weight: 87.9978 kg

DRUGS (5)
  1. LEXAPRO [Suspect]
     Indication: MAJOR DEPRESSION
     Dosage: 20 MG 1 DAILY PO APPROX. FEB TO MAY 2009
     Route: 048
  2. KLONOPIN [Concomitant]
  3. LAMICTAL [Concomitant]
  4. ZANAFLEX [Concomitant]
  5. DIOVAN HCT [Concomitant]

REACTIONS (6)
  - AGGRESSION [None]
  - AGITATION [None]
  - CONDITION AGGRAVATED [None]
  - DEPRESSION [None]
  - NO THERAPEUTIC RESPONSE [None]
  - SUICIDAL IDEATION [None]
